FAERS Safety Report 20549119 (Version 6)
Quarter: 2022Q3

REPORT INFORMATION
  Report Type: Report from Study
  Country: CN (occurrence: CN)
  Receive Date: 20220303
  Receipt Date: 20220801
  Transmission Date: 20221026
  Serious: Yes (Hospitalization, Other)
  Sender: FDA-Public Use
  Company Number: CN-EVEREST MEDICINES II (HK) LIMITED-2022-EVER-000006

PATIENT
  Age: 56 Year
  Sex: Female
  Weight: 65 kg

DRUGS (5)
  1. SACITUZUMAB GOVITECAN [Suspect]
     Active Substance: SACITUZUMAB GOVITECAN
     Indication: Hormone receptor positive HER2 negative breast cancer
     Dosage: 650 MG, DAY 1 AND 8 OF 21-DAY CYCLE
     Route: 042
     Dates: start: 20210918, end: 20220118
  2. SACITUZUMAB GOVITECAN [Suspect]
     Active Substance: SACITUZUMAB GOVITECAN
     Dosage: 660 MG, DAY 1 AND 8 OF 21-DAY CYCLE
     Route: 042
     Dates: start: 20210104, end: 20220214
  3. METOPROLOL TARTRATE [Concomitant]
     Active Substance: METOPROLOL TARTRATE
     Indication: Ventricular extrasystoles
     Dosage: 1 GRAIN QD
     Route: 065
     Dates: start: 202112
  4. METOPROLOL TARTRATE [Concomitant]
     Active Substance: METOPROLOL TARTRATE
     Dosage: 25 MILLIGRAM, QD
     Route: 065
     Dates: start: 202112
  5. SHEN SONG YANG XIN JIAO NANG [Concomitant]
     Indication: Ventricular extrasystoles
     Dosage: 0.4 GRAM (2 CAPSULES EACH TIME)
     Dates: start: 20211027

REACTIONS (1)
  - Interstitial lung disease [Not Recovered/Not Resolved]

NARRATIVE: CASE EVENT DATE: 20220124
